FAERS Safety Report 23467484 (Version 1)
Quarter: 2024Q1

REPORT INFORMATION
  Report Type: Spontaneous
  Country: US (occurrence: None)
  Receive Date: 20240201
  Receipt Date: 20240201
  Transmission Date: 20240409
  Serious: Yes (Other)
  Sender: FDA-Public Use
  Company Number: None

PATIENT
  Age: 74 Year
  Sex: Female
  Weight: 67.5 kg

DRUGS (5)
  1. EVENITY [Suspect]
     Active Substance: ROMOSOZUMAB-AQQG
     Indication: Osteoporosis
     Route: 058
     Dates: start: 20240105, end: 20240105
  2. ATORVASTATIN [Concomitant]
     Active Substance: ATORVASTATIN
  3. One a day multiple vitamin for women [Concomitant]
  4. presser vision vitamin [Concomitant]
  5. CALCIUM [Concomitant]
     Active Substance: CALCIUM

REACTIONS (4)
  - Arthralgia [None]
  - Pain in extremity [None]
  - Insomnia [None]
  - Mobility decreased [None]

NARRATIVE: CASE EVENT DATE: 20240110
